FAERS Safety Report 11625335 (Version 4)
Quarter: 2016Q1

REPORT INFORMATION
  Report Type: Spontaneous
  Country: JP (occurrence: JP)
  Receive Date: 20151013
  Receipt Date: 20160222
  Transmission Date: 20160525
  Serious: Yes (Death)
  Sender: FDA-Public Use
  Company Number: JP-JNJFOC-20150925370

PATIENT
  Age: 82 Year
  Sex: Male

DRUGS (4)
  1. PYRAZOLONE [Concomitant]
     Indication: POST HERPETIC NEURALGIA
     Dosage: DOSAGE: PRN
     Route: 048
     Dates: start: 20150625, end: 20151001
  2. SELBEX [Concomitant]
     Active Substance: TEPRENONE
     Indication: PROPHYLAXIS AGAINST GASTROINTESTINAL ULCER
     Route: 048
     Dates: start: 20150618, end: 20151001
  3. STELARA [Suspect]
     Active Substance: USTEKINUMAB
     Indication: PSORIASIS
     Route: 058
     Dates: start: 20150814, end: 20150814
  4. MEMANTINE HYDROCHLORIDE [Concomitant]
     Active Substance: MEMANTINE HYDROCHLORIDE
     Indication: DEMENTIA
     Route: 048
     Dates: start: 201507, end: 20151001

REACTIONS (8)
  - Peritonitis [Fatal]
  - Septic shock [Fatal]
  - Gastric perforation [Fatal]
  - C-reactive protein increased [Unknown]
  - Sepsis [Fatal]
  - Gingivitis [Recovering/Resolving]
  - Oral candidiasis [Not Recovered/Not Resolved]
  - Disseminated intravascular coagulation [Fatal]

NARRATIVE: CASE EVENT DATE: 20150916
